FAERS Safety Report 18110491 (Version 2)
Quarter: 2020Q3

REPORT INFORMATION
  Report Type: Spontaneous
  Country: PL (occurrence: PL)
  Receive Date: 20200804
  Receipt Date: 20200816
  Transmission Date: 20201103
  Serious: Yes (Death, Life-Threatening, Other)
  Sender: FDA-Public Use
  Company Number: NVSC2020PL201266

PATIENT
  Age: 64 Year
  Sex: Male

DRUGS (3)
  1. ETOPOSIDE. [Suspect]
     Active Substance: ETOPOSIDE
     Indication: SMALL CELL LUNG CANCER
     Dosage: 120 MG/M2, CYCLIC (FOR 3 CONSECUTIVE DAYS)
     Route: 065
     Dates: start: 20160725
  2. CARBOPLATIN. [Suspect]
     Active Substance: CARBOPLATIN
     Indication: SMALL CELL LUNG CANCER
     Dosage: ON DAY 1, AUC 5 AND ETOPOSIDE FOR 3 CONSECUTIVE DAYS AT A DOSE OF 120 MG / M2
     Route: 065
     Dates: start: 20160725
  3. ATEZOLIZUMAB. [Suspect]
     Active Substance: ATEZOLIZUMAB
     Indication: SMALL CELL LUNG CANCER
     Dosage: 120 MILLIGRAM, Q3WK (EVERY 3 WEEKS)
     Route: 042
     Dates: start: 20160725, end: 201712

REACTIONS (11)
  - Decreased appetite [Fatal]
  - Hypothyroidism [Fatal]
  - Anaemia [Fatal]
  - Arthralgia [Fatal]
  - Death [Fatal]
  - Neutropenia [Fatal]
  - Vomiting [Fatal]
  - Therapy partial responder [Fatal]
  - Asthenia [Fatal]
  - Fatigue [Fatal]
  - Hyperthyroidism [Unknown]

NARRATIVE: CASE EVENT DATE: 201803
